FAERS Safety Report 20006650 (Version 1)
Quarter: 2021Q4

REPORT INFORMATION
  Report Type: Spontaneous
  Country: HR (occurrence: HR)
  Receive Date: 20211028
  Receipt Date: 20211028
  Transmission Date: 20220303
  Serious: Yes (Other)
  Sender: FDA-Public Use
  Company Number: None

PATIENT
  Sex: Female

DRUGS (1)
  1. CLOZAPINE [Suspect]
     Active Substance: CLOZAPINE
     Indication: Product used for unknown indication
     Dosage: 4000 MILLIGRAM, 40 TABLETA LEPONEXA OD 100 MG
     Route: 048

REACTIONS (5)
  - Intentional overdose [Unknown]
  - Oxygen saturation decreased [Unknown]
  - Suicide attempt [Unknown]
  - Somnolence [Unknown]
  - Sinus tachycardia [Unknown]

NARRATIVE: CASE EVENT DATE: 20210425
